FAERS Safety Report 4928748-0 (Version None)
Quarter: 2006Q1

REPORT INFORMATION
  Report Type: 
  Country: None (occurrence: None)
  Receive Date: 20060227
  Receipt Date: 20060227
  Transmission Date: 20060701
  Serious: Yes (Life-Threatening)
  Sender: FDA-Public Use
  Company Number: None

PATIENT
  Sex: Female
  Weight: 72.5755 kg

DRUGS (2)
  1. AMBIEN CR [Suspect]
     Indication: INSOMNIA
     Dosage: 1    EVERY NIGHT   PO
     Route: 048
     Dates: start: 20051001, end: 20060207
  2. AMBIEN CR [Suspect]
     Indication: MENOPAUSE
     Dosage: 1    EVERY NIGHT   PO
     Route: 048
     Dates: start: 20051001, end: 20060207

REACTIONS (6)
  - AMNESIA [None]
  - CHEST DISCOMFORT [None]
  - HEART RATE DECREASED [None]
  - HEART RATE IRREGULAR [None]
  - SLEEP WALKING [None]
  - VENTRICULAR EXTRASYSTOLES [None]
